FAERS Safety Report 21479836 (Version 1)
Quarter: 2022Q4

REPORT INFORMATION
  Report Type: Spontaneous
  Country: DE (occurrence: DE)
  Receive Date: 20221019
  Receipt Date: 20221019
  Transmission Date: 20230112
  Serious: Yes (Death, Hospitalization, Other)
  Sender: FDA-Public Use
  Company Number: DE-VELOXIS PHARMACEUTICALS-2021VELDE-000318

PATIENT
  Age: 50 Year
  Sex: Male

DRUGS (6)
  1. TACROLIMUS [Suspect]
     Active Substance: TACROLIMUS
     Indication: Prophylaxis against transplant rejection
     Dosage: 1 MILLIGRAM, QD
  2. MYCOPHENOLATE MOFETIL [Suspect]
     Active Substance: MYCOPHENOLATE MOFETIL
     Indication: Immunosuppressant drug therapy
     Dosage: 1750 MILLIGRAM, QD
  3. METHYLPREDNISOLONE [Suspect]
     Active Substance: METHYLPREDNISOLONE
     Indication: Immunosuppressant drug therapy
     Dosage: 8 MILLIGRAM MONOTHERAPY
  4. METHYLPREDNISOLONE [Suspect]
     Active Substance: METHYLPREDNISOLONE
     Dosage: 2 MILLIGRAM, QD
  5. CEMIPLIMAB [Concomitant]
     Active Substance: CEMIPLIMAB
     Indication: Squamous cell carcinoma of skin
     Dosage: 3 MILLIGRAM/KILOGRAM EVERY 2 WEEK
  6. TACROLIMUS [Suspect]
     Active Substance: TACROLIMUS
     Indication: Immunosuppressant drug therapy
     Dosage: 1 MILLIGRAM, QD

REACTIONS (16)
  - Pneumocephalus [Fatal]
  - Ear haemorrhage [Fatal]
  - Shock haemorrhagic [Fatal]
  - Haemorrhage [Fatal]
  - Confusional state [Fatal]
  - Headache [Fatal]
  - Dyspepsia [Fatal]
  - General physical health deterioration [Fatal]
  - Basal cell carcinoma [Fatal]
  - Squamous cell carcinoma [Fatal]
  - Metastases to bone [Fatal]
  - Headache [Fatal]
  - Dyspepsia [Fatal]
  - General physical health deterioration [Fatal]
  - Basal cell carcinoma [Fatal]
  - Metastases to bone [Fatal]

NARRATIVE: CASE EVENT DATE: 20170401
